FAERS Safety Report 4734705-X (Version None)
Quarter: 2005Q3

REPORT INFORMATION
  Report Type: 
  Country: None (occurrence: None)
  Receive Date: 20050804
  Receipt Date: 20050725
  Transmission Date: 20060218
  Serious: Yes (Other)
  Sender: FDA-Public Use
  Company Number: US-JNJFOC-20050705349

PATIENT
  Age: 15 Month
  Sex: Male

DRUGS (1)
  1. TOPAMAX [Suspect]
     Indication: DRUG USE FOR UNKNOWN INDICATION
     Dosage: 1 OR 2 25 MG TABLETS
     Route: 048
     Dates: start: 20050724, end: 20050724

REACTIONS (2)
  - ACCIDENTAL EXPOSURE [None]
  - DISTURBANCE IN ATTENTION [None]
